FAERS Safety Report 20425040 (Version 1)
Quarter: 2022Q1

REPORT INFORMATION
  Report Type: Spontaneous
  Country: JP (occurrence: JP)
  Receive Date: 20220204
  Receipt Date: 20220204
  Transmission Date: 20220423
  Serious: No
  Sender: FDA-Public Use
  Company Number: JP-TAKEDA-2020TJP028975

PATIENT
  Age: 46 Year
  Sex: Male

DRUGS (8)
  1. CABOMETYX [Suspect]
     Active Substance: CABOZANTINIB S-MALATE
     Indication: Renal cell carcinoma
     Dosage: 60 MG QD
     Route: 048
     Dates: start: 20201209, end: 20201222
  2. CABOMETYX [Suspect]
     Active Substance: CABOZANTINIB S-MALATE
     Dosage: 40 MG QD
     Route: 048
     Dates: start: 20201223, end: 20210105
  3. CABOMETYX [Suspect]
     Active Substance: CABOZANTINIB S-MALATE
     Dosage: 20 MG QD
     Route: 048
     Dates: start: 20210106, end: 20210310
  4. CABOMETYX [Suspect]
     Active Substance: CABOZANTINIB S-MALATE
     Dosage: 20 MG QD
     Route: 048
     Dates: start: 20210407
  5. URSODIOL [Concomitant]
     Active Substance: URSODIOL
     Dosage: UNK
     Route: 065
  6. BIO-THREE [Concomitant]
     Active Substance: HERBALS
     Dosage: UNK
     Route: 065
  7. NADIFLOXACIN [Concomitant]
     Active Substance: NADIFLOXACIN
     Dosage: UNK
     Route: 065
  8. Zebiax [Concomitant]
     Dosage: UNK
     Route: 065

REACTIONS (3)
  - Dermatitis [Recovered/Resolved]
  - Diarrhoea [Recovering/Resolving]
  - Hepatic enzyme increased [Recovering/Resolving]

NARRATIVE: CASE EVENT DATE: 20201223
